FAERS Safety Report 9483986 (Version 2)
Quarter: 2013Q3

REPORT INFORMATION
  Report Type: Spontaneous
  Country: CA (occurrence: CA)
  Receive Date: 20130828
  Receipt Date: 20130828
  Transmission Date: 20140515
  Serious: Yes (Hospitalization, Other)
  Sender: FDA-Public Use
  Company Number: CA-AMGEN-KDL324384

PATIENT
  Age: 66 Year
  Sex: Female
  Weight: 53.6 kg

DRUGS (1)
  1. ENBREL [Suspect]
     Indication: RHEUMATOID ARTHRITIS
     Dosage: UNK UNK, QWK
     Route: 065
     Dates: start: 20080430, end: 20090724

REACTIONS (3)
  - Crohn^s disease [Unknown]
  - Pneumonia [Not Recovered/Not Resolved]
  - Gastrointestinal infection [Unknown]
